FAERS Safety Report 11829896 (Version 1)
Quarter: 2015Q4

REPORT INFORMATION
  Report Type: Spontaneous
  Country: US (occurrence: US)
  Receive Date: 20151212
  Receipt Date: 20151212
  Transmission Date: 20160305
  Serious: Yes (Death, Life-Threatening, Hospitalization, Other)
  Sender: FDA-Public Use
  Company Number: US-ASTRAZENECA-2015SF23102

PATIENT
  Sex: Male

DRUGS (3)
  1. BRILINTA [Suspect]
     Active Substance: TICAGRELOR
     Indication: ACUTE CORONARY SYNDROME
     Route: 048
     Dates: start: 201511
  2. ASPIRIN. [Concomitant]
     Active Substance: ASPIRIN
     Indication: ACUTE CORONARY SYNDROME
     Route: 048
  3. BRILINTA [Suspect]
     Active Substance: TICAGRELOR
     Indication: STENT PLACEMENT
     Route: 048
     Dates: start: 201511

REACTIONS (8)
  - Cardiac arrest [Unknown]
  - Death [Fatal]
  - Ventricular fibrillation [Unknown]
  - Coronary artery stenosis [Unknown]
  - Vascular stent occlusion [Unknown]
  - Coronary artery thrombosis [Unknown]
  - Drug dose omission [Unknown]
  - Brain death [Not Recovered/Not Resolved]

NARRATIVE: CASE EVENT DATE: 201511
